FAERS Safety Report 8530559-4 (Version None)
Quarter: 2012Q3

REPORT INFORMATION
  Report Type: 
  Country: None (occurrence: None)
  Receive Date: 20120723
  Receipt Date: 20120629
  Transmission Date: 20120928
  Serious: Yes (Hospitalization, Other)
  Sender: FDA-Public Use
  Company Number: HR-SANOFI-AVENTIS-200914002GDDC

PATIENT
  Age: 65 Year
  Sex: Female

DRUGS (7)
  1. OPTIPEN [Suspect]
  2. URAPIDIL [Concomitant]
     Dates: start: 20081101
  3. LACIDIPINE [Concomitant]
     Dates: start: 20080901
  4. LANTUS [Suspect]
     Route: 058
     Dates: start: 20041117
  5. INDAPAMID [Concomitant]
     Dates: start: 20080901
  6. OMEGA-3 POLYUNSATURATED FATTY ACID [Suspect]
     Route: 048
     Dates: start: 20041117
  7. MEDICATION UNKNOWN [Concomitant]
     Indication: TYPE 2 DIABETES MELLITUS
     Dates: start: 20070901

REACTIONS (1)
  - ADRENAL ADENOMA [None]
